FAERS Safety Report 20221254 (Version 5)
Quarter: 2022Q4

REPORT INFORMATION
  Report Type: Spontaneous
  Country: US (occurrence: US)
  Receive Date: 20211223
  Receipt Date: 20221014
  Transmission Date: 20230113
  Serious: Yes (Other)
  Sender: FDA-Public Use
  Company Number: US-Adare-2021-US-000112

PATIENT
  Age: 21 Year
  Sex: Male

DRUGS (2)
  1. KCL [Suspect]
     Active Substance: POTASSIUM CHLORIDE
     Indication: Familial periodic paralysis
     Dosage: DAILY
  2. SPIRONOLACTONE [Concomitant]
     Active Substance: SPIRONOLACTONE
     Indication: Familial periodic paralysis
     Dosage: DAILY

REACTIONS (2)
  - Paralysis [Unknown]
  - Food interaction [Recovered/Resolved]
